FAERS Safety Report 17108881 (Version 1)
Quarter: 2019Q4

REPORT INFORMATION
  Report Type: Spontaneous
  Country: CA (occurrence: CA)
  Receive Date: 20191203
  Receipt Date: 20191203
  Transmission Date: 20200122
  Serious: Yes (Hospitalization)
  Sender: FDA-Public Use
  Company Number: CA-HLSUS-2019-CA-000111

PATIENT
  Age: 14 Year
  Sex: Female

DRUGS (4)
  1. COGENTIN [Concomitant]
     Active Substance: BENZTROPINE MESYLATE
     Dosage: 1 MG DAILY AT BEDTIME
  2. ATROPINE. [Concomitant]
     Active Substance: ATROPINE
     Route: 002
  3. CLOZARIL [Suspect]
     Active Substance: CLOZAPINE
     Indication: SCHIZOPHRENIA
     Dosage: 50 MG IN THE MORNING AND 150 MG AT BEDTIME, DAILY
     Route: 048
     Dates: start: 201811
  4. LITHIUM. [Concomitant]
     Active Substance: LITHIUM
     Indication: SCHIZOAFFECTIVE DISORDER
     Dosage: 450MG AM AND 600MG HS
     Route: 048
     Dates: start: 20190221, end: 20190422

REACTIONS (2)
  - Seizure [Recovered/Resolved]
  - Myoclonus [Unknown]

NARRATIVE: CASE EVENT DATE: 201901
